FAERS Safety Report 18554723 (Version 1)
Quarter: 2020Q4

REPORT INFORMATION
  Report Type: Spontaneous
  Country: MX (occurrence: MX)
  Receive Date: 20201127
  Receipt Date: 20201127
  Transmission Date: 20210114
  Serious: Yes (Other)
  Sender: FDA-Public Use
  Company Number: MX-JNJFOC-20201143677

PATIENT
  Age: 75 Year
  Sex: Male
  Weight: 69 kg

DRUGS (2)
  1. RIVAROXABAN [Suspect]
     Active Substance: RIVAROXABAN
     Indication: PRODUCT USED FOR UNKNOWN INDICATION
     Dosage: 2.5 MG, BID
     Route: 048
     Dates: start: 20200205
  2. RIVAROXABAN [Suspect]
     Active Substance: RIVAROXABAN
     Dosage: 2.5 MG, QD
     Route: 048
     Dates: start: 2020

REACTIONS (2)
  - Venous valve ruptured [Unknown]
  - Off label use [Unknown]

NARRATIVE: CASE EVENT DATE: 2020
